FAERS Safety Report 8524360-5 (Version None)
Quarter: 2012Q3

REPORT INFORMATION
  Report Type: 
  Country: None (occurrence: None)
  Receive Date: 20120720
  Receipt Date: 20120710
  Transmission Date: 20120928
  Serious: Yes (Hospitalization, Disabling)
  Sender: FDA-Public Use
  Company Number: DE-ABBOTT-12P-062-0935772-00

PATIENT
  Age: 48 Year
  Sex: Female
  Weight: 61 kg

DRUGS (11)
  1. HUMIRA [Suspect]
     Route: 058
     Dates: start: 20120227, end: 20120227
  2. PREDNISONE [Suspect]
     Route: 048
     Dates: start: 20120123, end: 20120129
  3. PREDNISONE [Suspect]
     Route: 048
     Dates: start: 20120206, end: 20120212
  4. PREDNISONE [Suspect]
     Indication: CROHN'S DISEASE
     Route: 048
     Dates: start: 20111219, end: 20120101
  5. PREDNISONE [Suspect]
     Route: 048
     Dates: start: 20120109, end: 20120115
  6. PREDNISONE [Suspect]
     Route: 048
     Dates: start: 20120116, end: 20120122
  7. HUMIRA [Suspect]
     Indication: CROHN'S DISEASE
     Route: 058
     Dates: start: 20120213, end: 20120213
  8. HUMIRA [Suspect]
     Route: 058
     Dates: start: 20120312, end: 20120514
  9. PREDNISONE [Suspect]
     Route: 048
     Dates: start: 20120102, end: 20120108
  10. PREDNISONE [Suspect]
     Route: 048
     Dates: start: 20120130, end: 20120205
  11. CHOLESTAGEL [Concomitant]
     Indication: DIARRHOEA
     Dates: start: 20120327

REACTIONS (1)
  - CROHN'S DISEASE [None]
